FAERS Safety Report 24595962 (Version 1)
Quarter: 2024Q4

REPORT INFORMATION
  Report Type: Spontaneous
  Country: CH (occurrence: CH)
  Receive Date: 20241109
  Receipt Date: 20241109
  Transmission Date: 20250114
  Serious: Yes (Other)
  Sender: TEVA
  Company Number: None

PATIENT
  Age: 55 Year
  Sex: Male
  Weight: 105 kg

DRUGS (2)
  1. TESTOSTERONE [Suspect]
     Active Substance: TESTOSTERONE
     Indication: Hypogonadism
     Dosage: TIME INTERVAL: TOTAL: TESTOSTERONE MEPHA
     Route: 030
     Dates: start: 20240627, end: 20240627
  2. Amlodipino valsartan [Concomitant]
     Indication: Hypertension
     Dosage: AMLODIPIN-VALSARTAN 10/160MG
     Route: 065

REACTIONS (7)
  - Pulmonary oil microembolism [Recovered/Resolved]
  - Chest discomfort [Recovered/Resolved]
  - Product substitution issue [Recovered/Resolved]
  - Heart rate increased [Recovered/Resolved]
  - Malaise [Recovered/Resolved]
  - Hyperhidrosis [Recovered/Resolved]
  - Cough [Recovered/Resolved]

NARRATIVE: CASE EVENT DATE: 20240627
